FAERS Safety Report 7902806-0 (Version None)
Quarter: 2011Q4

REPORT INFORMATION
  Report Type: 
  Country: None (occurrence: None)
  Receive Date: 20111109
  Receipt Date: 20111031
  Transmission Date: 20120403
  Serious: No
  Sender: FDA-Public Use
  Company Number: US-BIOGENIDEC-2011BI041453

PATIENT
  Age: 56 Year
  Sex: Female

DRUGS (1)
  1. AVONEX [Suspect]
     Indication: MULTIPLE SCLEROSIS
     Route: 030
     Dates: start: 20100630

REACTIONS (5)
  - ASTHENIA [None]
  - GAIT DISTURBANCE [None]
  - ARTHRALGIA [None]
  - BALANCE DISORDER [None]
  - INFLUENZA LIKE ILLNESS [None]
